FAERS Safety Report 5644177-9 (Version None)
Quarter: 2008Q1

REPORT INFORMATION
  Report Type: 
  Country: None (occurrence: None)
  Receive Date: 20080227
  Receipt Date: 20080227
  Transmission Date: 20080703
  Serious: Yes (Hospitalization)
  Sender: FDA-Public Use
  Company Number: None

PATIENT
  Age: 3 Year
  Sex: Male
  Weight: 13.6079 kg

DRUGS (1)
  1. EXJADE [Suspect]
     Indication: IRON OVERLOAD
     Dosage: 250 MG AT BEDTIME PO
     Route: 048
     Dates: start: 20070707, end: 20080130

REACTIONS (3)
  - ABNORMAL BEHAVIOUR [None]
  - HEPATOTOXICITY [None]
  - MENTAL STATUS CHANGES [None]
